FAERS Safety Report 8174551-0 (Version None)
Quarter: 2012Q1

REPORT INFORMATION
  Report Type: 
  Country: None (occurrence: None)
  Receive Date: 20120229
  Receipt Date: 20120227
  Transmission Date: 20120608
  Serious: Yes (Other)
  Sender: FDA-Public Use
  Company Number: US-PFIZER INC-2012051696

PATIENT
  Sex: Female
  Weight: 52.154 kg

DRUGS (7)
  1. IRON [Concomitant]
     Dosage: UNK
  2. MIRTAZAPINE [Concomitant]
     Dosage: UNK
  3. LIPITOR [Suspect]
     Indication: BLOOD CHOLESTEROL INCREASED
     Dosage: 40 MG, 1X/DAY
     Route: 048
  4. AMLODIPINE [Concomitant]
     Indication: HYPERTENSION
     Dosage: UNK
  5. LISINOPRIL [Concomitant]
     Dosage: UNK
  6. ASPIRIN [Concomitant]
     Dosage: UNK
  7. REVATIO [Concomitant]
     Dosage: UNK

REACTIONS (3)
  - FALL [None]
  - MIGRAINE [None]
  - BACK PAIN [None]
